FAERS Safety Report 23383148 (Version 1)
Quarter: 2024Q1

REPORT INFORMATION
  Report Type: Spontaneous
  Country: FI (occurrence: FI)
  Receive Date: 20240109
  Receipt Date: 20240109
  Transmission Date: 20240410
  Serious: Yes (Death)
  Sender: FDA-Public Use
  Company Number: FI-JNJFOC-20231128993

PATIENT
  Age: 81 Year
  Sex: Male
  Weight: 60.5 kg

DRUGS (17)
  1. PEMETREXED [Suspect]
     Active Substance: PEMETREXED
     Indication: Non-small cell lung cancer
     Dosage: 640 MILLIGRAM
     Route: 065
     Dates: start: 20231107
  2. CARBOPLATIN [Suspect]
     Active Substance: CARBOPLATIN
     Indication: Non-small cell lung cancer
     Dosage: 280 MILLIGRAM
     Route: 065
     Dates: start: 20231107, end: 20231107
  3. RYBREVANT [Suspect]
     Active Substance: AMIVANTAMAB-VMJW
     Indication: Non-small cell lung cancer
     Dosage: 350 MILLIGRAM
     Route: 042
     Dates: start: 20231107, end: 20231107
  4. RYBREVANT [Suspect]
     Active Substance: AMIVANTAMAB-VMJW
     Dosage: 1050 MILLIGRAM
     Route: 042
     Dates: start: 20231108, end: 20231108
  5. RYBREVANT [Suspect]
     Active Substance: AMIVANTAMAB-VMJW
     Dosage: 1400 MILLIGRAM
     Route: 042
     Dates: start: 20231114, end: 20231114
  6. RYBREVANT [Suspect]
     Active Substance: AMIVANTAMAB-VMJW
     Dosage: 1400 MILLIGRAM
     Route: 042
     Dates: start: 20231121, end: 20231128
  7. FOLIVER [Concomitant]
     Dosage: UNK
     Route: 065
  8. Panadol forte [Concomitant]
     Dosage: 1000 MILLIGRAM
     Route: 065
  9. CANDESARTAN [Concomitant]
     Active Substance: CANDESARTAN
     Dosage: 16 MILLIGRAM
     Route: 065
  10. Dexacure [Concomitant]
     Dosage: UNK
     Route: 065
  11. ZOFRAN [Concomitant]
     Active Substance: ONDANSETRON HYDROCHLORIDE
     Dosage: 8 MILLIGRAM
     Route: 065
  12. VITAMIN C [Concomitant]
     Active Substance: ASCORBIC ACID
     Dosage: UNK
     Route: 065
  13. DEVISOL [Concomitant]
     Dosage: UNK
     Route: 065
  14. CLEMASTINE FUMARATE [Concomitant]
     Active Substance: CLEMASTINE FUMARATE
     Dosage: UNK
     Route: 065
  15. PREDNISOLONE [Concomitant]
     Active Substance: PREDNISOLONE
     Dosage: 40 MILLIGRAM
     Route: 065
  16. MIRTAZAPINE [Concomitant]
     Active Substance: MIRTAZAPINE
     Dosage: 15 MILLIGRAM
     Route: 065
  17. TRAMADOL [Concomitant]
     Active Substance: TRAMADOL\TRAMADOL HYDROCHLORIDE
     Dosage: 150 MILLIGRAM
     Route: 065

REACTIONS (9)
  - Pneumonia [Fatal]
  - Dry mouth [Unknown]
  - Infusion related reaction [Unknown]
  - Hypotension [Unknown]
  - Flushing [Unknown]
  - Decreased appetite [Unknown]
  - Constipation [Unknown]
  - Fatigue [Unknown]
  - Rash [Unknown]

NARRATIVE: CASE EVENT DATE: 20231128
